FAERS Safety Report 9197243 (Version 2)
Quarter: 2013Q4

REPORT INFORMATION
  Report Type: Report from Study
  Country: BE (occurrence: BE)
  Receive Date: 20130328
  Receipt Date: 20131113
  Transmission Date: 20140711
  Serious: Yes (Other)
  Sender: FDA-Public Use
  Company Number: BE-ROCHE-1207687

PATIENT
  Age: 75 Year
  Sex: Male
  Weight: 58 kg

DRUGS (6)
  1. ZELBORAF [Suspect]
     Indication: METASTATIC MALIGNANT MELANOMA
     Route: 065
     Dates: start: 20130305
  2. ZELBORAF [Suspect]
     Dosage: HALF DOSE
     Route: 065
     Dates: end: 20131105
  3. TOTALIP [Concomitant]
     Indication: HYPERCHOLESTEROLAEMIA
     Route: 048
  4. COVERSYL [Concomitant]
     Indication: HYPERTENSION
     Route: 048
  5. LASIX [Concomitant]
     Indication: OEDEMA
     Route: 048
     Dates: start: 20130701
  6. PANTOMED (BELGIUM) [Concomitant]
     Indication: GASTRIC ULCER
     Route: 048

REACTIONS (2)
  - Rash [Recovered/Resolved]
  - Proctitis [Unknown]
